FAERS Safety Report 25378893 (Version 1)
Quarter: 2025Q2

REPORT INFORMATION
  Report Type: Report from Study
  Country: US (occurrence: US)
  Receive Date: 20250530
  Receipt Date: 20250530
  Transmission Date: 20250717
  Serious: No
  Sender: CELLTRION
  Company Number: US-CELLTRION INC.-2025US007832

PATIENT

DRUGS (1)
  1. INFLIXIMAB-DYYB [Suspect]
     Active Substance: INFLIXIMAB-DYYB
     Indication: Colitis ulcerative
     Dosage: 120 MG/ML PEN KIT -INJECT THE CONTENTS OF ONE DEVICE UNDER THE SKIN EVERY TWO WEEKS
     Route: 058

REACTIONS (1)
  - Chills [Not Recovered/Not Resolved]
